FAERS Safety Report 18969296 (Version 5)
Quarter: 2021Q2

REPORT INFORMATION
  Report Type: Report from Study
  Country: US (occurrence: US)
  Receive Date: 20210304
  Receipt Date: 20210531
  Transmission Date: 20210717
  Serious: Yes (Hospitalization, Other)
  Sender: FDA-Public Use
  Company Number: US-KYOWAKIRIN-2021BKK002973

PATIENT

DRUGS (2)
  1. POTELIGEO [Suspect]
     Active Substance: MOGAMULIZUMAB-KPKC
     Indication: PRODUCT USED FOR UNKNOWN INDICATION
     Dosage: UNK
     Route: 065
  2. LASIX [Suspect]
     Active Substance: FUROSEMIDE
     Indication: PRODUCT USED FOR UNKNOWN INDICATION
     Dosage: UNK
     Route: 065

REACTIONS (14)
  - Cardiac failure congestive [Unknown]
  - Insomnia [Unknown]
  - Renal impairment [Unknown]
  - Emotional distress [Unknown]
  - Lymphocyte count decreased [Unknown]
  - Therapy non-responder [Not Recovered/Not Resolved]
  - Suicidal ideation [Unknown]
  - Pruritus [Not Recovered/Not Resolved]
  - Condition aggravated [Not Recovered/Not Resolved]
  - Blood blister [Not Recovered/Not Resolved]
  - Dyspnoea [Unknown]
  - Burning sensation [Unknown]
  - Skin lesion [Not Recovered/Not Resolved]
  - Joint swelling [Unknown]

NARRATIVE: CASE EVENT DATE: 202102
